FAERS Safety Report 7592264-0 (Version None)
Quarter: 2011Q3

REPORT INFORMATION
  Report Type: 
  Country: None (occurrence: None)
  Receive Date: 20110706
  Receipt Date: 20110622
  Transmission Date: 20111222
  Serious: Yes (Hospitalization)
  Sender: FDA-Public Use
  Company Number: CA-JNJFOC-20110611432

PATIENT
  Sex: Female
  Weight: 52 kg

DRUGS (3)
  1. REMICADE [Suspect]
     Indication: CROHN'S DISEASE
     Route: 042
     Dates: start: 20110622
  2. GRAVOL TAB [Concomitant]
     Indication: PREMEDICATION
     Route: 042
  3. REMICADE [Suspect]
     Route: 042
     Dates: start: 20070601

REACTIONS (4)
  - FALL [None]
  - GASTROINTESTINAL INFLAMMATION [None]
  - INFUSION RELATED REACTION [None]
  - NAUSEA [None]
